FAERS Safety Report 12631255 (Version 2)
Quarter: 2016Q3

REPORT INFORMATION
  Report Type: Spontaneous
  Country: US (occurrence: US)
  Receive Date: 20160808
  Receipt Date: 20160808
  Transmission Date: 20161109
  Serious: No
  Sender: FDA-Public Use
  Company Number: US-BEH-2015053048

PATIENT
  Sex: Male
  Weight: 93 kg

DRUGS (9)
  1. HIZENTRA [Suspect]
     Active Substance: HUMAN IMMUNOGLOBULIN G
     Indication: IMMUNODEFICIENCY COMMON VARIABLE
     Route: 058
  2. ADVIL [Concomitant]
     Active Substance: IBUPROFEN
  3. MULTIVITAMINS [Concomitant]
     Active Substance: VITAMINS
  4. NEXIUM [Concomitant]
     Active Substance: ESOMEPRAZOLE MAGNESIUM
  5. CLARINEX [Concomitant]
     Active Substance: DESLORATADINE
  6. EPIPEN [Concomitant]
     Active Substance: EPINEPHRINE
  7. DIPHENHYDRAMINE. [Concomitant]
     Active Substance: DIPHENHYDRAMINE
     Indication: ANAPHYLACTIC REACTION
  8. NASONEX [Concomitant]
     Active Substance: MOMETASONE FUROATE
  9. ADVAIR HFA [Concomitant]
     Active Substance: FLUTICASONE PROPIONATE\SALMETEROL XINAFOATE

REACTIONS (1)
  - Influenza like illness [Unknown]
